FAERS Safety Report 5317276-9 (Version None)
Quarter: 2007Q2

REPORT INFORMATION
  Report Type: 
  Country: None (occurrence: None)
  Receive Date: 20070504
  Receipt Date: 20070425
  Transmission Date: 20071010
  Serious: Yes (Death)
  Sender: FDA-Public Use
  Company Number: IL-ABBOTT-06P-082-0347651-00

PATIENT
  Age: 36 Year
  Sex: Male

DRUGS (1)
  1. KALETRA [Suspect]
     Indication: HIV INFECTION
     Dosage: 100/400MG BID
     Route: 048

REACTIONS (1)
  - COMPLETED SUICIDE [None]
